FAERS Safety Report 5664967-6 (Version None)
Quarter: 2008Q1

REPORT INFORMATION
  Report Type: 
  Country: None (occurrence: None)
  Receive Date: 20080314
  Receipt Date: 20080304
  Transmission Date: 20080703
  Serious: Yes (Disabling, Other)
  Sender: FDA-Public Use
  Company Number: CH-PFIZER INC-2008012747

PATIENT
  Sex: Female
  Weight: 50 kg

DRUGS (7)
  1. LYRICA [Suspect]
     Indication: ANXIETY
     Route: 048
     Dates: start: 20071031, end: 20080115
  2. LYRICA [Suspect]
     Indication: PANIC DISORDER
     Dosage: TEXT:TDD:200 MG
     Route: 048
     Dates: start: 20071113, end: 20080102
  3. LYRICA [Suspect]
     Indication: DEPRESSION
     Dosage: TEXT:TDD:50 MG
     Route: 048
     Dates: start: 20080103, end: 20080115
  4. ALL OTHER THERAPEUTIC PRODUCTS [Concomitant]
  5. REBIF [Concomitant]
  6. CIPRALEX [Concomitant]
     Route: 048
  7. XANAX [Concomitant]
     Route: 048
     Dates: start: 20070915, end: 20080101

REACTIONS (4)
  - EYE PAIN [None]
  - FATIGUE [None]
  - LACRIMATION INCREASED [None]
  - PHOTOSENSITIVITY REACTION [None]
